FAERS Safety Report 8850486 (Version 2)
Quarter: 2013Q1

REPORT INFORMATION
  Report Type: Spontaneous
  Country: US (occurrence: US)
  Receive Date: 20121019
  Receipt Date: 20130117
  Transmission Date: 20140127
  Serious: No
  Sender: FDA-Public Use
  Company Number: US-009507513-1210USA007905

PATIENT
  Sex: Female

DRUGS (2)
  1. IMPLANON [Suspect]
     Indication: CONTRACEPTION
     Dosage: UNK
     Dates: start: 20120919, end: 20120919
  2. IMPLANON [Suspect]
     Dosage: UNK
     Dates: start: 20120919

REACTIONS (3)
  - Device difficult to use [Unknown]
  - Product quality issue [Unknown]
  - No adverse event [Unknown]
